FAERS Safety Report 16589073 (Version 1)
Quarter: 2019Q3

REPORT INFORMATION
  Report Type: Spontaneous
  Country: AT (occurrence: AT)
  Receive Date: 20190718
  Receipt Date: 20190718
  Transmission Date: 20191004
  Serious: Yes (Other)
  Sender: FDA-Public Use
  Company Number: AT-AMGEN-AUTSP2019046965

PATIENT
  Age: 50 Year
  Sex: Female

DRUGS (1)
  1. AIMOVIG [Suspect]
     Active Substance: ERENUMAB-AOOE
     Indication: MIGRAINE
     Dosage: 70 MILLIGRAM, UNK
     Route: 058
     Dates: start: 201812

REACTIONS (4)
  - Breast cancer [Unknown]
  - Chills [Recovered/Resolved]
  - Migraine [Unknown]
  - Sensitivity to weather change [Recovered/Resolved]
